FAERS Safety Report 12725668 (Version 1)
Quarter: 2016Q3

REPORT INFORMATION
  Report Type: Spontaneous
  Country: US (occurrence: US)
  Receive Date: 20160908
  Receipt Date: 20160908
  Transmission Date: 20161109
  Serious: No
  Sender: FDA-Public Use
  Company Number: US-KVK-TECH, INC-1057177

PATIENT
  Sex: Female

DRUGS (2)
  1. OXYCODONE HYDROCHLORIDE. [Suspect]
     Active Substance: OXYCODONE HYDROCHLORIDE
     Indication: PAIN
     Route: 048
     Dates: start: 20160821
  2. FENTANYL TRANSDERMAL SYSTEM [Concomitant]
     Active Substance: FENTANYL
     Route: 062

REACTIONS (1)
  - Drug ineffective [Not Recovered/Not Resolved]

NARRATIVE: CASE EVENT DATE: 20160821
